FAERS Safety Report 12408298 (Version 3)
Quarter: 2016Q2

REPORT INFORMATION
  Report Type: Spontaneous
  Country: US (occurrence: US)
  Receive Date: 20160526
  Receipt Date: 20160617
  Transmission Date: 20160815
  Serious: Yes (Hospitalization)
  Sender: FDA-Public Use
  Company Number: US-PFIZER INC-2016261021

PATIENT
  Sex: Female

DRUGS (1)
  1. LEVOXYL [Suspect]
     Active Substance: LEVOTHYROXINE SODIUM
     Indication: HYPOTHYROIDISM
     Dosage: 88 UG, 1X/DAY
     Dates: start: 2016

REACTIONS (8)
  - Feeling abnormal [Unknown]
  - Vertigo [Recovered/Resolved]
  - Blood thyroid stimulating hormone increased [Unknown]
  - Asthenia [Recovered/Resolved]
  - White blood cell count decreased [Unknown]
  - Product quality issue [Unknown]
  - Dizziness [Unknown]
  - Condition aggravated [Recovered/Resolved]
